FAERS Safety Report 18611276 (Version 1)
Quarter: 2020Q4

REPORT INFORMATION
  Report Type: Report from Study
  Country: KR (occurrence: KR)
  Receive Date: 20201214
  Receipt Date: 20201214
  Transmission Date: 20210114
  Serious: Yes (Hospitalization)
  Sender: FDA-Public Use
  Company Number: KR-BRISTOL-MYERS SQUIBB COMPANY-BMS-2020-093362

PATIENT
  Age: 53 Year
  Sex: Female
  Weight: 57 kg

DRUGS (7)
  1. ERIBULIN MESILATE [Suspect]
     Active Substance: ERIBULIN
     Indication: BREAST CANCER
     Dosage: 1.4 MILLIGRAM/SQ. METER(D1, 8)
     Route: 042
     Dates: start: 20201014, end: 20201104
  2. FILGRASTIM [Concomitant]
     Active Substance: FILGRASTIM
     Indication: NEUTROPENIA
     Dosage: 30 MICROGRAM
     Route: 058
     Dates: start: 20201030, end: 20201030
  3. METOCLOPRAMIDE. [Concomitant]
     Active Substance: METOCLOPRAMIDE
     Indication: NAUSEA
     Dosage: 10 MILLIGRAM, QD
     Route: 042
     Dates: start: 20201102, end: 20201102
  4. FURTMAN [Concomitant]
     Indication: DECREASED APPETITE
     Dosage: 2 MILLILITER, QD
     Route: 042
     Dates: start: 20201029, end: 20201103
  5. NIVOLUMAB [Suspect]
     Active Substance: NIVOLUMAB
     Indication: BREAST CANCER
     Dosage: 360 MILLIGRAM, Q3WK
     Route: 042
     Dates: start: 20201014, end: 20201104
  6. TAMIPOOL [Concomitant]
     Active Substance: VITAMINS
     Indication: DECREASED APPETITE
     Dosage: 1 DOSAGE FORM = 1 VIAL
     Route: 042
     Dates: start: 20201029, end: 20201103
  7. PERI OLIMEL N4E [Concomitant]
     Indication: DECREASED APPETITE
     Dosage: 1000 MILLILITER, QD
     Route: 042
     Dates: start: 20201029, end: 20201103

REACTIONS (1)
  - Oral candidiasis [Recovered/Resolved]

NARRATIVE: CASE EVENT DATE: 20201028
